FAERS Safety Report 24613789 (Version 2)
Quarter: 2024Q4

REPORT INFORMATION
  Report Type: Spontaneous
  Country: JP (occurrence: JP)
  Receive Date: 20241113
  Receipt Date: 20241126
  Transmission Date: 20250115
  Serious: Yes (Other)
  Sender: PFIZER
  Company Number: JP-PFIZER INC-PV202400145276

PATIENT
  Age: 76 Year
  Sex: Male

DRUGS (2)
  1. METHYLPREDNISOLONE SODIUM SUCCINATE [Suspect]
     Active Substance: METHYLPREDNISOLONE SODIUM SUCCINATE
     Indication: Orbital apex syndrome
     Dosage: 1000 MG, 1X/DAY (CORTICOSTEROID PULSE THERAPY)
  2. METHYLPREDNISOLONE SODIUM SUCCINATE [Suspect]
     Active Substance: METHYLPREDNISOLONE SODIUM SUCCINATE
     Indication: Tolosa-Hunt syndrome

REACTIONS (4)
  - Off label use [Unknown]
  - Orbital apex syndrome [Not Recovered/Not Resolved]
  - Aspergillus infection [Recovered/Resolved]
  - Condition aggravated [Recovered/Resolved]
